FAERS Safety Report 8172917-6 (Version None)
Quarter: 2012Q1

REPORT INFORMATION
  Report Type: 
  Country: None (occurrence: None)
  Receive Date: 20120223
  Receipt Date: 20120209
  Transmission Date: 20120608
  Serious: Yes (Hospitalization)
  Sender: FDA-Public Use
  Company Number: 1000028520

PATIENT
  Age: 55 Year
  Sex: Female

DRUGS (7)
  1. OMEPRAZOLE [Concomitant]
  2. CITALOPRAM HYDROBROMIDE [Suspect]
     Indication: DEPRESSION
     Dosage: 30 MG (30 MG, L IN 1 D),ORAL
     Route: 048
     Dates: start: 20110601, end: 20110711
  3. RAMIPRIL/HYDROCLOROTHIAZIDE(RAMIPRIL, HYDROCLOROTHIAZIDE)(TABLETS) [Suspect]
     Indication: HYPERTENSION
     Dosage: ORAL
     Route: 048
     Dates: start: 20110708, end: 20110711
  4. EUTIROX(LEVOTHYROXINE SODIUM)(TABLETS)(LEVOTHYROXIL SODIUM) [Concomitant]
  5. EVISTA(RALOXIFENE HYDROCHLORIDE)(60 MILLIGRAM, TABLETS)(RALOXIFENE HYD [Concomitant]
  6. RILUTEK(RILUZOLE)(50 MILLIGRAM, TABLETS)(RILUZOLE) [Concomitant]
  7. PREDNISONE [Concomitant]

REACTIONS (3)
  - RESPIRATORY FAILURE [None]
  - DRUG INTERACTION [None]
  - HYPONATRAEMIA [None]
